FAERS Safety Report 12182545 (Version 2)
Quarter: 2016Q2

REPORT INFORMATION
  Report Type: Report from Study
  Country: CA (occurrence: CA)
  Receive Date: 20160316
  Receipt Date: 20160401
  Transmission Date: 20160815
  Serious: Yes (Other)
  Sender: FDA-Public Use
  Company Number: CA-ROCHE-1726544

PATIENT
  Sex: Female

DRUGS (25)
  1. RITUXAN [Suspect]
     Active Substance: RITUXIMAB
     Indication: RHEUMATOID ARTHRITIS
     Route: 042
     Dates: start: 20090422, end: 20091203
  2. POTASSIUM CHLORIDE. [Concomitant]
     Active Substance: POTASSIUM CHLORIDE
  3. RABEPRAZOLE [Concomitant]
     Active Substance: RABEPRAZOLE
  4. ATORVASTATIN [Concomitant]
     Active Substance: ATORVASTATIN
  5. GAVISCON (CANADA) [Concomitant]
  6. LEUCOVORIN. [Concomitant]
     Active Substance: LEUCOVORIN
  7. FUROSEMIDE. [Concomitant]
     Active Substance: FUROSEMIDE
  8. CALCIUM CITRATE [Concomitant]
     Active Substance: CALCIUM CITRATE
  9. DILAUDID [Concomitant]
     Active Substance: HYDROMORPHONE HYDROCHLORIDE
     Dosage: LONG ACTING AND SHORT ACTING
     Route: 065
  10. TYLENOL WITH CODEINE [Concomitant]
     Active Substance: ACETAMINOPHEN\CODEINE PHOSPHATE
  11. ASPIRIN. [Concomitant]
     Active Substance: ASPIRIN
  12. METHOTREXATE [Concomitant]
     Active Substance: METHOTREXATE
  13. CELECOXIB. [Concomitant]
     Active Substance: CELECOXIB
  14. ARAVA [Concomitant]
     Active Substance: LEFLUNOMIDE
  15. FOLIC ACID. [Concomitant]
     Active Substance: FOLIC ACID
  16. METHYLPREDNISOLONE. [Concomitant]
     Active Substance: METHYLPREDNISOLONE
     Route: 042
     Dates: start: 20090422, end: 20091203
  17. PREDNISONE. [Concomitant]
     Active Substance: PREDNISONE
  18. HYDROXYCHLOROQUINE [Concomitant]
     Active Substance: HYDROXYCHLOROQUINE
  19. GABAPENTIN. [Concomitant]
     Active Substance: GABAPENTIN
  20. RITUXAN [Suspect]
     Active Substance: RITUXIMAB
     Indication: INTERSTITIAL LUNG DISEASE
  21. BUSCOPAN [Concomitant]
     Active Substance: BUTYLSCOPOLAMINE BROMIDE
  22. VALACYCLOVIR [Concomitant]
     Active Substance: VALACYCLOVIR HYDROCHLORIDE
  23. FLUCONAZOLE. [Concomitant]
     Active Substance: FLUCONAZOLE
  24. DIPHENHYDRAMINE. [Concomitant]
     Active Substance: DIPHENHYDRAMINE
     Route: 048
     Dates: start: 20090422, end: 20091203
  25. ACETAMINOPHEN. [Concomitant]
     Active Substance: ACETAMINOPHEN
     Route: 048
     Dates: start: 20090422, end: 20091203

REACTIONS (2)
  - Rheumatoid arthritis [Unknown]
  - Memory impairment [Unknown]
